FAERS Safety Report 5377067-X (Version None)
Quarter: 2007Q2

REPORT INFORMATION
  Report Type: 
  Country: None (occurrence: None)
  Receive Date: 20070628
  Receipt Date: 20070628
  Transmission Date: 20071010
  Serious: Yes (Hospitalization)
  Sender: FDA-Public Use
  Company Number: None

PATIENT
  Sex: Male
  Weight: 51 kg

DRUGS (2)
  1. TIPRANAVIR 250 MG [Suspect]
     Indication: HIV INFECTION
     Dosage: 500MG BID PO
     Route: 048
     Dates: start: 20060401, end: 20070624
  2. RITONIVIR 100 MG [Suspect]
     Indication: HIV INFECTION
     Dosage: 200 MG BID PO
     Route: 048
     Dates: start: 20031101, end: 20070624

REACTIONS (6)
  - ASTHENIA [None]
  - CEREBRAL HAEMORRHAGE [None]
  - CONFUSIONAL STATE [None]
  - FACIAL PALSY [None]
  - FALL [None]
  - SPEECH DISORDER [None]
